FAERS Safety Report 8334995-0 (Version None)
Quarter: 2012Q2

REPORT INFORMATION
  Report Type: 
  Country: None (occurrence: None)
  Receive Date: 20120503
  Receipt Date: 20120426
  Transmission Date: 20120825
  Serious: Yes (Other)
  Sender: FDA-Public Use
  Company Number: US-ELI_LILLY_AND_COMPANY-US201205000127

PATIENT
  Sex: Female

DRUGS (2)
  1. LEVEMIR [Concomitant]
     Dosage: 30 U, UNKNOWN
  2. HUMULIN R [Suspect]
     Indication: TYPE 1 DIABETES MELLITUS
     Dosage: 7 U, UNKNOWN

REACTIONS (3)
  - MACULAR DEGENERATION [None]
  - BLINDNESS [None]
  - MEDICATION ERROR [None]
